FAERS Safety Report 16950587 (Version 5)
Quarter: 2020Q1

REPORT INFORMATION
  Report Type: Report from Study
  Country: DE (occurrence: DE)
  Receive Date: 20191023
  Receipt Date: 20200226
  Transmission Date: 20200409
  Serious: Yes (Hospitalization)
  Sender: FDA-Public Use
  Company Number: DE-ROCHE-2435581

PATIENT
  Age: 75 Year
  Sex: Male
  Weight: 87 kg

DRUGS (9)
  1. VEMURAFENIB. [Suspect]
     Active Substance: VEMURAFENIB
     Dosage: DATE OF LAST DOSE PRIOR TO SAE/AESI ON 01/OCT/2019.?ON DAY 1-28 OF A 28-DAY-CYCLE
     Route: 048
     Dates: start: 20190722
  2. TORASEMIDE [Concomitant]
     Active Substance: TORSEMIDE
     Route: 065
     Dates: start: 20190927
  3. RAMIPRIL. [Concomitant]
     Active Substance: RAMIPRIL
     Route: 065
     Dates: start: 20160101
  4. COBIMETINIB. [Suspect]
     Active Substance: COBIMETINIB
     Dosage: DATE OF LAST DOSE PRIOR TO SAE/AESI ON 01/OCT/2019.?ON DAY 1-21 OF A 28-DAY-CYCLE?TILL 26/SEP/2019.
     Route: 048
     Dates: start: 20190730
  5. BOTOX [Concomitant]
     Active Substance: ONABOTULINUMTOXINA
     Route: 065
     Dates: start: 20180101
  6. VEMURAFENIB. [Suspect]
     Active Substance: VEMURAFENIB
     Indication: MALIGNANT MELANOMA
     Dosage: DATE OF LAST DOSE PRIOR TO SAE/AESI ON 01/OCT/2019.?ON DAY 1-28 OF A 28-DAY-CYCLE
     Route: 048
     Dates: start: 20190704, end: 20191024
  7. VEMURAFENIB. [Suspect]
     Active Substance: VEMURAFENIB
     Dosage: DATE OF LAST DOSE PRIOR TO SAE/AESI ON 01/OCT/2019.?ON DAY 1-28 OF A 28-DAY-CYCLE?TILL 26/SEP/2019.
     Route: 048
     Dates: start: 20190730, end: 20190926
  8. COBIMETINIB. [Suspect]
     Active Substance: COBIMETINIB
     Indication: MALIGNANT MELANOMA
     Dosage: DATE OF LAST DOSE PRIOR TO SAE/AESI ON 01/OCT/2019.?ON DAY 1-21 OF A 28-DAY-CYCLE
     Route: 048
     Dates: start: 20190704
  9. COBIMETINIB. [Suspect]
     Active Substance: COBIMETINIB
     Dosage: DATE OF LAST DOSE PRIOR TO SAE/AESI ON 01/OCT/2019.?ON DAY 1-21 OF A 28-DAY-CYCLE
     Route: 048
     Dates: start: 20190722

REACTIONS (2)
  - Ventricular arrhythmia [Not Recovered/Not Resolved]
  - Cardiac failure [Recovered/Resolved]

NARRATIVE: CASE EVENT DATE: 20191001
